FAERS Safety Report 19983352 (Version 1)
Quarter: 2021Q4

REPORT INFORMATION
  Report Type: Report from Study
  Country: IT (occurrence: IT)
  Receive Date: 20211021
  Receipt Date: 20211021
  Transmission Date: 20220303
  Serious: Yes (Other)
  Sender: FDA-Public Use
  Company Number: None

PATIENT
  Age: 77 Year
  Sex: Female

DRUGS (7)
  1. NEBIVOLOL [Suspect]
     Active Substance: NEBIVOLOL
     Indication: Hypertension
     Dosage: UNIT DOSE: 5 MG
     Route: 048
     Dates: start: 20200101, end: 20210528
  2. CARDURA [Suspect]
     Active Substance: DOXAZOSIN MESYLATE
     Indication: Hypertension
     Dosage: UNIT DOSE: 1 DF
     Route: 048
     Dates: start: 20200101, end: 20210528
  3. AMLODIPINE BESYLATE\OLMESARTAN MEDOXOMIL [Suspect]
     Active Substance: AMLODIPINE BESYLATE\OLMESARTAN MEDOXOMIL
     Indication: Hypertension
     Dosage: GIANT 40 MG / 5 MG TABLETS COATED WITH FILM, UNIT DOSE: 1 DF
     Route: 048
     Dates: start: 20200101, end: 20210528
  4. ASPIRIN [Concomitant]
     Active Substance: ASPIRIN
  5. NOVORAPID [Concomitant]
     Active Substance: INSULIN ASPART
     Dosage: UNIT DOSE: 25 MG
     Route: 058
  6. LEVEMIR [Concomitant]
     Active Substance: INSULIN DETEMIR
     Dosage: LEVEMIR 100 UNITS / ML , UNIT DOSE: 12 IU
  7. NEXIUM [Concomitant]
     Active Substance: ESOMEPRAZOLE MAGNESIUM

REACTIONS (2)
  - Hypertensive crisis [Recovering/Resolving]
  - Drug ineffective [Recovering/Resolving]

NARRATIVE: CASE EVENT DATE: 20210528
